FAERS Safety Report 5027781-0 (Version None)
Quarter: 2006Q2

REPORT INFORMATION
  Report Type: 
  Country: None (occurrence: None)
  Receive Date: 20060616
  Receipt Date: 20060613
  Transmission Date: 20061013
  Serious: Yes (Death, Hospitalization)
  Sender: FDA-Public Use
  Company Number: FR-JNJFOC-20060602582

PATIENT
  Age: 70 Year
  Sex: Female

DRUGS (9)
  1. OFLOCET [Suspect]
     Indication: PYELONEPHRITIS
     Route: 048
     Dates: start: 20060414, end: 20060419
  2. LOVENOX [Suspect]
     Indication: DRUG USE FOR UNKNOWN INDICATION
     Route: 058
     Dates: start: 20060414, end: 20060419
  3. PREVISCAN [Suspect]
     Indication: DRUG USE FOR UNKNOWN INDICATION
     Route: 065
     Dates: start: 20060414, end: 20060419
  4. ATARAX [Concomitant]
     Route: 048
     Dates: start: 20060415, end: 20060419
  5. CORDARONE [Concomitant]
     Route: 048
     Dates: start: 20060414, end: 20060418
  6. ALDACTONE [Concomitant]
     Route: 048
     Dates: start: 20060411, end: 20060417
  7. MOPRAL [Concomitant]
     Route: 048
     Dates: start: 20060411, end: 20060419
  8. CLAMOXYL [Concomitant]
     Route: 065
     Dates: start: 20060411, end: 20060414
  9. THYROXIN [Concomitant]
     Route: 065
     Dates: start: 20060411

REACTIONS (4)
  - ABDOMINAL HAEMATOMA [None]
  - CONVULSION [None]
  - INTERNATIONAL NORMALISED RATIO INCREASED [None]
  - SHOCK HAEMORRHAGIC [None]
